FAERS Safety Report 5759043-8 (Version None)
Quarter: 2008Q2

REPORT INFORMATION
  Report Type: 
  Country: None (occurrence: None)
  Receive Date: 20080602
  Receipt Date: 20080521
  Transmission Date: 20081010
  Serious: Yes (Hospitalization)
  Sender: FDA-Public Use
  Company Number: 167-20785-05050379

PATIENT
  Age: 70 Year
  Sex: Male
  Weight: 89.1 kg

DRUGS (13)
  1. THALIDOMIDE [Suspect]
     Indication: SMALL CELL LUNG CANCER STAGE UNSPECIFIED
     Dosage: 100 MG, DAILY, ORAL
     Route: 048
     Dates: start: 20050401, end: 20050513
  2. CARBOPLATIN [Suspect]
     Indication: SMALL CELL LUNG CANCER STAGE UNSPECIFIED
     Dosage: 750 MG, DAILY, INTRAVENOUS
     Route: 042
     Dates: start: 20050422, end: 20050422
  3. ETOPOSIDE [Suspect]
     Indication: SMALL CELL LUNG CANCER STAGE UNSPECIFIED
     Dosage: 200 MG, DAILY, ORAL
     Route: 048
     Dates: start: 20050422, end: 20050424
  4. ASPIRIN [Concomitant]
  5. PERINDOPRIL (PERINDOPRIL) (UNKNOWN) [Concomitant]
  6. DEXAMETHASONE [Concomitant]
  7. BECLOMETHASONE (BELCOMETASONE DIPROPIONATE) (UNKNOWN) [Concomitant]
  8. LANSOPRAZOLE [Concomitant]
  9. CIPROFLOXACIN [Concomitant]
  10. GRANISETRON (GRANISETRON) (UNKNOWN) [Concomitant]
  11. METOCLOPRAMIDE (METOCLOPRAMIDE) (UNKNOWN) [Concomitant]
  12. FLOXACILLIN SODIUM [Concomitant]
  13. PENICILLIN (BENZYLPENICILLIN SODIUM) (UNKNOWN) [Concomitant]

REACTIONS (5)
  - AGGRESSION [None]
  - CONFUSIONAL STATE [None]
  - INAPPROPRIATE AFFECT [None]
  - MENTAL DISORDER [None]
  - PHRENIC NERVE PARALYSIS [None]
